FAERS Safety Report 10499526 (Version 1)
Quarter: 2014Q4

REPORT INFORMATION
  Report Type: Spontaneous
  Country: US (occurrence: US)
  Receive Date: 20141006
  Receipt Date: 20141006
  Transmission Date: 20150528
  Serious: No
  Sender: FDA-Public Use
  Company Number: US-AMGEN INC.-USASP2014035067

PATIENT
  Age: 80 Year
  Sex: Female

DRUGS (1)
  1. PROLIA [Suspect]
     Active Substance: DENOSUMAB
     Indication: PRODUCT USED FOR UNKNOWN INDICATION
     Dosage: UNK
     Route: 065
     Dates: start: 20110803

REACTIONS (13)
  - Malaise [Unknown]
  - Peripheral swelling [Unknown]
  - Impaired healing [Unknown]
  - Burning sensation [Unknown]
  - Dry mouth [Unknown]
  - Scratch [Unknown]
  - Arthritis [Unknown]
  - Eye irritation [Unknown]
  - Decreased appetite [Unknown]
  - Oral disorder [Unknown]
  - Mouth ulceration [Unknown]
  - Lip swelling [Unknown]
  - Weight decreased [Unknown]
